FAERS Safety Report 8263132-6 (Version None)
Quarter: 2012Q2

REPORT INFORMATION
  Report Type: 
  Country: None (occurrence: None)
  Receive Date: 20120405
  Receipt Date: 20120323
  Transmission Date: 20120825
  Serious: Yes (Hospitalization)
  Sender: FDA-Public Use
  Company Number: CA-ELI_LILLY_AND_COMPANY-CA201203007090

PATIENT
  Age: 62 Year
  Sex: Female

DRUGS (2)
  1. TYLENOL (CAPLET) [Concomitant]
     Dosage: UNK, UNKNOWN
  2. CYMBALTA [Suspect]
     Indication: FIBROMYALGIA
     Dosage: 60 MG, UNKNOWN
     Dates: start: 20111201, end: 20120110

REACTIONS (4)
  - DEHYDRATION [None]
  - LEUKOPENIA [None]
  - APHAGIA [None]
  - ORAL CANDIDIASIS [None]
